FAERS Safety Report 7720780-7 (Version None)
Quarter: 2011Q3

REPORT INFORMATION
  Report Type: 
  Country: None (occurrence: None)
  Receive Date: 20110831
  Receipt Date: 20110820
  Transmission Date: 20111222
  Serious: Yes (Hospitalization)
  Sender: FDA-Public Use
  Company Number: US-JNJFOC-20110309473

PATIENT
  Sex: Female
  Weight: 57.38 kg

DRUGS (16)
  1. REMICADE [Suspect]
     Indication: CROHN'S DISEASE
     Route: 042
     Dates: start: 20020801
  2. METHOTREXATE [Concomitant]
  3. PRILOSEC [Concomitant]
  4. PREDNISONE [Concomitant]
     Indication: PREMEDICATION
     Dosage: INITIATED PRIOR TO INFLIXIMAB; USED FOR FLARES THROUGH THE YEARS
  5. TYLENOL W/ CODEINE NO. 3 [Concomitant]
     Indication: ABDOMINAL PAIN
     Dates: start: 20060106
  6. PREDNISONE [Concomitant]
     Indication: CONDITION AGGRAVATED
     Dosage: INITIATED PRIOR TO INFLIXIMAB; USED FOR FLARES THROUGH THE YEARS
  7. ASACOL [Concomitant]
     Indication: CROHN'S DISEASE
     Dosage: INITIATED BEFORE 2003
  8. REMICADE [Suspect]
     Indication: ARTHRITIS
     Route: 042
     Dates: start: 20020801
  9. METHOTREXATE [Concomitant]
     Indication: PREMEDICATION
  10. METHOTREXATE [Concomitant]
  11. REMICADE [Suspect]
     Dosage: Q6-8 WEEKS
     Route: 042
     Dates: start: 20031201
  12. REMICADE [Suspect]
     Dosage: Q6-8 WEEKS
     Route: 042
     Dates: start: 20031201
  13. METHOTREXATE [Concomitant]
     Indication: CROHN'S DISEASE
  14. XANAX [Concomitant]
     Indication: NERVOUSNESS
  15. TENORMIN [Concomitant]
     Indication: HYPERTENSION
  16. MARINOL [Concomitant]

REACTIONS (1)
  - NON-HODGKIN'S LYMPHOMA [None]
